FAERS Safety Report 21385833 (Version 2)
Quarter: 2022Q4

REPORT INFORMATION
  Report Type: Other
  Country: ES (occurrence: None)
  Receive Date: 20220928
  Receipt Date: 20221006
  Transmission Date: 20230113
  Serious: No
  Sender: FDA-Public Use
  Company Number: ES-ROCHE-3187616

PATIENT
  Age: 36 Year
  Sex: Female
  Weight: 56.7 kg

DRUGS (2)
  1. OCRELIZUMAB [Suspect]
     Active Substance: OCRELIZUMAB
     Indication: Relapsing-remitting multiple sclerosis
     Dosage: SUBSEQUENT DOSES ON: 18/MAR/2020
     Route: 042
     Dates: start: 20200304, end: 20200304
  2. OCRELIZUMAB [Suspect]
     Active Substance: OCRELIZUMAB
     Dosage: SUBSEQUENT DOSES ON:  22/MAR/2021, 10/SEP/2021, 28/MAR/2022, 23/SEP/2022
     Route: 042
     Dates: start: 20200921, end: 20200921

REACTIONS (1)
  - COVID-19 [Recovered/Resolved]

NARRATIVE: CASE EVENT DATE: 20220601
